FAERS Safety Report 7876454-5 (Version None)
Quarter: 2011Q4

REPORT INFORMATION
  Report Type: 
  Country: None (occurrence: None)
  Receive Date: 20111031
  Receipt Date: 20111020
  Transmission Date: 20120403
  Serious: Yes (Hospitalization)
  Sender: FDA-Public Use
  Company Number: US-ASTRAZENECA-2011SE50947

PATIENT
  Age: 68 Year
  Sex: Male

DRUGS (11)
  1. TENORMIN [Suspect]
     Route: 048
     Dates: start: 20090506
  2. CLOTRIMAZOLE PLUS BETAMETHASONE [Concomitant]
     Dosage: 1.0 0.5 PERCENT APPLY SAPERATELY ON AFFECTED AREA TWICE DAILY
     Route: 061
  3. GLUCOSAMINE [Concomitant]
  4. PLAVIX [Concomitant]
     Route: 048
     Dates: start: 20090506
  5. ZETIA [Concomitant]
     Route: 048
     Dates: start: 20091209
  6. ESTER C [Concomitant]
     Route: 065
     Dates: start: 20070209
  7. FISH OIL [Concomitant]
     Route: 048
     Dates: start: 20090729
  8. TENORMIN [Suspect]
     Route: 048
  9. CRESTOR [Suspect]
     Route: 048
     Dates: start: 20091209
  10. ASPIRIN [Concomitant]
     Route: 048
     Dates: start: 20070209
  11. MULTI-VITAMINS [Concomitant]
     Route: 048
     Dates: start: 20070209

REACTIONS (1)
  - CHEST PAIN [None]
